FAERS Safety Report 16130883 (Version 1)
Quarter: 2019Q1

REPORT INFORMATION
  Report Type: Report from Study
  Country: CA (occurrence: CA)
  Receive Date: 20190328
  Receipt Date: 20190328
  Transmission Date: 20190418
  Serious: Yes (Other)
  Sender: FDA-Public Use
  Company Number: CA-APOPHARMA-2019AP010084

PATIENT
  Sex: Female
  Weight: 66 kg

DRUGS (1)
  1. FERRIPROX [Suspect]
     Active Substance: DEFERIPRONE
     Indication: SIDEROBLASTIC ANAEMIA
     Dosage: 15 MG/KG, TID
     Route: 048
     Dates: start: 20180514, end: 20190225

REACTIONS (1)
  - White blood cell count decreased [Recovered/Resolved]
